FAERS Safety Report 24622024 (Version 1)
Quarter: 2024Q4

REPORT INFORMATION
  Report Type: Spontaneous
  Country: US (occurrence: US)
  Receive Date: 20241114
  Receipt Date: 20241114
  Transmission Date: 20250115
  Serious: No
  Sender: MERCK
  Company Number: US-009507513-2411USA003977

PATIENT
  Sex: Female
  Weight: 116.55 kg

DRUGS (34)
  1. WINREVAIR [Suspect]
     Active Substance: SOTATERCEPT-CSRK
     Indication: Product used for unknown indication
     Dosage: UNK
  2. REMODULIN [Suspect]
     Active Substance: TREPROSTINIL
     Indication: Pulmonary arterial hypertension
     Dosage: 0.0679 MICROGRAM PER KILOGRAM, CONTINUOUS USE (PHARMACY-FILLED WITH 3 ML PER CASSETTE AT PUMP RATE O
     Route: 058
     Dates: start: 20230522
  3. FAMOTIDINE [Concomitant]
     Active Substance: FAMOTIDINE
  4. ZYRTEC [Concomitant]
     Active Substance: CETIRIZINE HYDROCHLORIDE
  5. GAS-X [Concomitant]
     Active Substance: DIMETHICONE
  6. IMODIUM A-D [Concomitant]
     Active Substance: LOPERAMIDE HYDROCHLORIDE
  7. POTASSIUM CHLORIDE [Concomitant]
     Active Substance: POTASSIUM CHLORIDE
  8. ALLOPURINOL [Concomitant]
     Active Substance: ALLOPURINOL
  9. TORSEMIDE [Concomitant]
     Active Substance: TORSEMIDE
  10. KETAMINE HYDROCHLORIDE [Concomitant]
     Active Substance: KETAMINE HYDROCHLORIDE
  11. LECITHIN [Concomitant]
     Active Substance: LECITHIN
  12. SODIUM BICARBONATE [Concomitant]
     Active Substance: SODIUM BICARBONATE
  13. SILDENAFIL [Concomitant]
     Active Substance: SILDENAFIL
  14. FLONASE ALLERGY RELIEF [Concomitant]
     Active Substance: FLUTICASONE PROPIONATE
  15. PREPARATION H [HYDROCORTISONE] [Concomitant]
  16. CELEBREX [Concomitant]
     Active Substance: CELECOXIB
  17. METOPROLOL SUCCINATE [Concomitant]
     Active Substance: METOPROLOL SUCCINATE
  18. CLONIDINE [Concomitant]
     Active Substance: CLONIDINE
  19. KETOPROFEN [Concomitant]
     Active Substance: KETOPROFEN
  20. MONTELUKAST SODIUM [Concomitant]
     Active Substance: MONTELUKAST SODIUM
  21. VITAMIN B12 [Concomitant]
     Active Substance: CYANOCOBALAMIN
  22. DEXILANT [Concomitant]
     Active Substance: DEXLANSOPRAZOLE
  23. TUMS EX [Concomitant]
     Active Substance: CALCIUM CARBONATE
  24. OXYGEN [Concomitant]
     Active Substance: OXYGEN
  25. SPIRONOLACTONE [Concomitant]
     Active Substance: SPIRONOLACTONE
  26. LIDOCAINE HYDROCHLORIDE [Concomitant]
     Active Substance: LIDOCAINE HYDROCHLORIDE
  27. ACETAMINOPHEN [Concomitant]
     Active Substance: ACETAMINOPHEN
  28. AMITRIPTYLINE [Concomitant]
     Active Substance: AMITRIPTYLINE
  29. GABAPENTIN [Concomitant]
     Active Substance: GABAPENTIN
  30. POLOXAMER [Concomitant]
     Active Substance: POLOXAMER
  31. DIPHENHYDRAMINE HYDROCHLORIDE [Concomitant]
     Active Substance: DIPHENHYDRAMINE HYDROCHLORIDE
  32. ONDANSETRON HYDROCHLORIDE [Concomitant]
     Active Substance: ONDANSETRON HYDROCHLORIDE
  33. WARFARIN SODIUM [Concomitant]
     Active Substance: WARFARIN SODIUM
  34. SYMBICORT [Concomitant]
     Active Substance: BUDESONIDE\FORMOTEROL FUMARATE DIHYDRATE

REACTIONS (1)
  - Haemoglobin increased [Unknown]
